FAERS Safety Report 21940197 (Version 4)
Quarter: 2023Q1

REPORT INFORMATION
  Report Type: Spontaneous
  Country: JP (occurrence: JP)
  Receive Date: 20230201
  Receipt Date: 20230324
  Transmission Date: 20230418
  Serious: Yes (Hospitalization)
  Sender: FDA-Public Use
  Company Number: JP-MTPC-MTPC2023-0002420

PATIENT
  Age: 37 Year
  Sex: Female

DRUGS (7)
  1. CANAGLIFLOZIN [Suspect]
     Active Substance: CANAGLIFLOZIN
     Indication: Type 2 diabetes mellitus
     Dosage: 100 MILLIGRAM, QD
     Route: 048
     Dates: end: 20220615
  2. METFORMIN HYDROCHLORIDE [Suspect]
     Active Substance: METFORMIN HYDROCHLORIDE
     Indication: Type 2 diabetes mellitus
     Dosage: 500 MILLIGRAM, BID
     Route: 048
     Dates: end: 20220615
  3. PIOGLITAZONE [Suspect]
     Active Substance: PIOGLITAZONE
     Indication: Type 2 diabetes mellitus
     Dosage: 30 MILLIGRAM, QD
     Route: 048
     Dates: end: 20220615
  4. GLIMEPIRIDE [Suspect]
     Active Substance: GLIMEPIRIDE
     Indication: Type 2 diabetes mellitus
     Dosage: 1 MILLIGRAM, QD
     Route: 048
     Dates: end: 20220615
  5. SEMAGLUTIDE [Suspect]
     Active Substance: SEMAGLUTIDE
     Indication: Type 2 diabetes mellitus
     Dosage: 7 MILLIGRAM, QD
     Route: 048
     Dates: end: 20220615
  6. PEMAFIBRATE [Concomitant]
     Active Substance: PEMAFIBRATE
     Indication: Hyperlipidaemia
     Dosage: 0.1 MILLIGRAM, BID
     Route: 048
     Dates: end: 20220615
  7. AMLODIPINE [Concomitant]
     Active Substance: AMLODIPINE BESYLATE
     Indication: Hypertension
     Dosage: 5 MILLIGRAM, QD
     Route: 048
     Dates: end: 20220615

REACTIONS (2)
  - Hypertensive nephropathy [Recovered/Resolved]
  - Maternal exposure during pregnancy [Unknown]

NARRATIVE: CASE EVENT DATE: 20220615
